FAERS Safety Report 5157292-3 (Version None)
Quarter: 2006Q4

REPORT INFORMATION
  Report Type: 
  Country: None (occurrence: None)
  Receive Date: 20061127
  Receipt Date: 20061113
  Transmission Date: 20070319
  Serious: Yes (Other)
  Sender: FDA-Public Use
  Company Number: PHBS2006ES17735

PATIENT
  Age: 46 Year
  Sex: Female

DRUGS (5)
  1. ZOLEDRONIC ACID [Suspect]
     Indication: METASTASES TO BONE
     Dosage: 4 MG, EVERY 3-4 WEEKS
     Route: 042
  2. LETROZOLE [Concomitant]
     Route: 065
  3. CALCIUM [Concomitant]
     Route: 048
  4. VITAMIN D [Concomitant]
     Route: 048
  5. CHLORHEXIDINE [Concomitant]
     Route: 065

REACTIONS (2)
  - OSTEONECROSIS [None]
  - TOOTH EXTRACTION [None]
